FAERS Safety Report 9741211 (Version 1)
Quarter: 2013Q4

REPORT INFORMATION
  Report Type: Spontaneous
  Country: US (occurrence: US)
  Receive Date: 20131209
  Receipt Date: 20131209
  Transmission Date: 20140711
  Serious: No
  Sender: FDA-Public Use
  Company Number: US-BIOGENIDEC-2013BI095841

PATIENT
  Age: 40 Year
  Sex: Female

DRUGS (2)
  1. TECFIDERA [Suspect]
     Indication: MULTIPLE SCLEROSIS
     Route: 048
     Dates: start: 20130918, end: 20130925
  2. TECFIDERA [Suspect]
     Indication: MULTIPLE SCLEROSIS
     Route: 048
     Dates: start: 20130918, end: 20130925

REACTIONS (9)
  - Fatigue [Recovered/Resolved]
  - Headache [Recovered/Resolved with Sequelae]
  - Faeces discoloured [Recovered/Resolved]
  - Pyrexia [Recovered/Resolved with Sequelae]
  - Depression [Recovered/Resolved]
  - Rash [Recovered/Resolved]
  - Flushing [Recovered/Resolved with Sequelae]
  - Nausea [Recovered/Resolved]
  - Pruritus [Recovered/Resolved with Sequelae]
